FAERS Safety Report 6010917-2 (Version None)
Quarter: 2008Q4

REPORT INFORMATION
  Report Type: 
  Country: None (occurrence: None)
  Receive Date: 20081216
  Receipt Date: 20081204
  Transmission Date: 20090506
  Serious: Yes (Hospitalization)
  Sender: FDA-Public Use
  Company Number: 08H-163-0315305-00

PATIENT
  Age: 69 Year
  Sex: Male
  Weight: 72.5 kg

DRUGS (18)
  1. DEXMEDETOMIDINE INJECTION (DEXMEDETOMIDINE HYDROCHLORIDE) [Suspect]
     Indication: SEDATION
     Dosage: SEE IMAGE
     Route: 042
     Dates: start: 20081113, end: 20081113
  2. DEXMEDETOMIDINE INJECTION (DEXMEDETOMIDINE HYDROCHLORIDE) [Suspect]
     Indication: SEDATION
     Dosage: SEE IMAGE
     Route: 042
     Dates: start: 20081113, end: 20081113
  3. DEXMEDETOMIDINE INJECTION (DEXMEDETOMIDINE HYDROCHLORIDE) [Suspect]
     Indication: SEDATION
     Dosage: SEE IMAGE
     Route: 042
     Dates: start: 20081113, end: 20081113
  4. DEXMEDETOMIDINE INJECTION (DEXMEDETOMIDINE HYDROCHLORIDE) [Suspect]
     Indication: SEDATION
     Dosage: SEE IMAGE
     Route: 042
     Dates: start: 20081113, end: 20081113
  5. B12 (THIAMINE) [Concomitant]
  6. AMLODIPINE [Concomitant]
  7. VALSARTAN [Concomitant]
  8. HYDROCHLOROTHIAZIDE [Concomitant]
  9. SIMVASTATIN [Concomitant]
  10. FENTANYL-100 [Concomitant]
  11. LIDOCAINE [Concomitant]
  12. PROPOFOL [Concomitant]
  13. ROCURONIUM BROMIDE [Concomitant]
  14. ESMOLOL (ESMOLOL) [Concomitant]
  15. ASPIRIN [Concomitant]
  16. GLYCOPYRROLATE [Concomitant]
  17. HEPARIN [Concomitant]
  18. SEVOFLURANE [Concomitant]

REACTIONS (7)
  - ABNORMAL BEHAVIOUR [None]
  - AGGRESSION [None]
  - AGITATION [None]
  - ENCEPHALOPATHY [None]
  - VASCULAR DEMENTIA [None]
  - WERNICKE'S ENCEPHALOPATHY [None]
  - WERNICKE-KORSAKOFF SYNDROME [None]
